FAERS Safety Report 9644335 (Version 2)
Quarter: 2013Q4

REPORT INFORMATION
  Report Type: Spontaneous
  Country: US (occurrence: US)
  Receive Date: 20131025
  Receipt Date: 20131212
  Transmission Date: 20140711
  Serious: Yes (Hospitalization)
  Sender: FDA-Public Use
  Company Number: US-BIOGENIDEC-2013BI101655

PATIENT
  Age: 61 Year
  Sex: Female

DRUGS (5)
  1. TYSABRI [Suspect]
     Indication: MULTIPLE SCLEROSIS
     Route: 042
     Dates: start: 20121210
  2. LEVOFLOXACIN [Concomitant]
     Indication: SINUSITIS
  3. LOTREL [Concomitant]
     Indication: HYPERTENSION
     Dates: end: 201306
  4. NORVASC [Concomitant]
     Indication: HYPERTENSION
  5. METOPROLOL [Concomitant]
     Indication: HYPERTENSION

REACTIONS (15)
  - Drug ineffective [Unknown]
  - Swollen tongue [Recovered/Resolved]
  - Blood calcium decreased [Recovered/Resolved]
  - Hypoparathyroidism [Unknown]
  - Muscle spasms [Recovered/Resolved]
  - Dizziness [Recovered/Resolved]
  - Dyspnoea [Recovered/Resolved]
  - Dehydration [Recovered/Resolved]
  - Vasodilatation [Unknown]
  - Hepatic neoplasm [Unknown]
  - Palpitations [Recovered/Resolved]
  - Blood pressure increased [Recovered/Resolved]
  - Oxygen saturation decreased [Recovered/Resolved]
  - Restrictive pulmonary disease [Not Recovered/Not Resolved]
  - Cough [Not Recovered/Not Resolved]
